FAERS Safety Report 23151414 (Version 2)
Quarter: 2023Q4

REPORT INFORMATION
  Report Type: Spontaneous
  Country: CA (occurrence: CA)
  Receive Date: 20231107
  Receipt Date: 20231219
  Transmission Date: 20240109
  Serious: Yes (Other)
  Sender: FDA-Public Use
  Company Number: CA-CELLTRION INC.-2023CA011616

PATIENT

DRUGS (2)
  1. INFLECTRA [Suspect]
     Active Substance: INFLIXIMAB-DYYB
     Indication: Colitis ulcerative
     Dosage: 450 MG W0, W2, W6 AND Q8 WEEKS
     Route: 042
     Dates: start: 20230519
  2. INFLECTRA [Suspect]
     Active Substance: INFLIXIMAB-DYYB
     Dosage: 450 MG W0, W2, W6 AND Q8 WEEKS
     Route: 042
     Dates: start: 20231005

REACTIONS (8)
  - Autoimmune disorder [Unknown]
  - Rash pruritic [Unknown]
  - Rash [Unknown]
  - Blister [Unknown]
  - Acne [Unknown]
  - Off label use [Unknown]
  - Off label use [Unknown]
  - Intentional product use issue [Unknown]

NARRATIVE: CASE EVENT DATE: 20230101
